FAERS Safety Report 10261119 (Version 3)
Quarter: 2014Q3

REPORT INFORMATION
  Report Type: Spontaneous
  Country: US (occurrence: US)
  Receive Date: 20140626
  Receipt Date: 20140731
  Transmission Date: 20150326
  Serious: Yes (Hospitalization, Other)
  Sender: FDA-Public Use
  Company Number: US-JNJFOC-20140617143

PATIENT
  Age: 85 Year
  Sex: Female
  Weight: 68.9 kg

DRUGS (9)
  1. ULTRAM [Concomitant]
     Active Substance: TRAMADOL HYDROCHLORIDE
  2. IMBRUVICA [Suspect]
     Active Substance: IBRUTINIB
     Indication: WALDENSTROM^S MACROGLOBULINAEMIA
     Route: 048
     Dates: start: 20140122, end: 20140606
  3. METOPROLOL SUCCINATE. [Concomitant]
     Active Substance: METOPROLOL SUCCINATE
     Route: 048
  4. PERCOCET [Concomitant]
     Active Substance: ACETAMINOPHEN\OXYCODONE HYDROCHLORIDE
     Indication: PAIN
  5. IMBRUVICA [Suspect]
     Active Substance: IBRUTINIB
     Indication: WALDENSTROM^S MACROGLOBULINAEMIA
     Route: 048
     Dates: start: 20140620
  6. FERROUS SULFATE [Concomitant]
     Active Substance: FERROUS SULFATE\FERROUS SULFATE, DRIED
  7. FOLATE [Concomitant]
     Active Substance: FOLATE SODIUM
     Route: 048
  8. PRILOSEC [Concomitant]
     Active Substance: OMEPRAZOLE MAGNESIUM
  9. IMBRUVICA [Suspect]
     Active Substance: IBRUTINIB
     Indication: WALDENSTROM^S MACROGLOBULINAEMIA
     Route: 048
     Dates: start: 20140619, end: 20140620

REACTIONS (9)
  - Fatigue [Not Recovered/Not Resolved]
  - Iron overload [Unknown]
  - Oedema peripheral [Not Recovered/Not Resolved]
  - Fall [Recovered/Resolved]
  - Pleural effusion [Unknown]
  - Musculoskeletal pain [Unknown]
  - Humerus fracture [Recovered/Resolved]
  - Haemolytic anaemia [Recovering/Resolving]
  - Post procedural pulmonary embolism [Recovering/Resolving]

NARRATIVE: CASE EVENT DATE: 2014
